FAERS Safety Report 5475919-3 (Version None)
Quarter: 2007Q4

REPORT INFORMATION
  Report Type: 
  Country: None (occurrence: None)
  Receive Date: 20071003
  Receipt Date: 20070919
  Transmission Date: 20080405
  Serious: Yes (Hospitalization)
  Sender: FDA-Public Use
  Company Number: DE-ELI_LILLY_AND_COMPANY-DE200709004048

PATIENT
  Sex: Male
  Weight: 75 kg

DRUGS (2)
  1. GEMZAR [Suspect]
     Indication: NON-SMALL CELL LUNG CANCER
     Dosage: 1877.5 MG, UNKNOWN
     Route: 065
     Dates: start: 20070522
  2. CORTISONE ACETATE [Concomitant]
     Indication: PULMONARY FIBROSIS
     Dosage: UNK, UNKNOWN
     Route: 065
     Dates: start: 20070501

REACTIONS (4)
  - INTERSTITIAL LUNG DISEASE [None]
  - PNEUMONIA [None]
  - PO2 DECREASED [None]
  - PYREXIA [None]
